FAERS Safety Report 8625459-5 (Version None)
Quarter: 2012Q3

REPORT INFORMATION
  Report Type: 
  Country: None (occurrence: None)
  Receive Date: 20120827
  Receipt Date: 20120818
  Transmission Date: 20120928
  Serious: Yes (Other)
  Sender: FDA-Public Use
  Company Number: US-ABBOTT-12P-163-0970106-00

PATIENT
  Sex: Female

DRUGS (1)
  1. HUMIRA [Suspect]
     Indication: CROHN'S DISEASE
     Route: 058
     Dates: start: 20111201

REACTIONS (3)
  - IRON DEFICIENCY ANAEMIA [None]
  - LARGE INTESTINAL HAEMORRHAGE [None]
  - RECTAL HAEMORRHAGE [None]
